FAERS Safety Report 9251820 (Version 1)
Quarter: 2013Q1

REPORT INFORMATION
  Report Type: Spontaneous
  Country: US (occurrence: None)
  Receive Date: 20130305
  Receipt Date: 20130305
  Transmission Date: 20140127
  Serious: Yes (Hospitalization)
  Sender: FDA-Public Use
  Company Number: 163-21880-12091195

PATIENT
  Age: 62 Year
  Sex: Female

DRUGS (3)
  1. REVLIMID [Suspect]
     Indication: MYELODYSPLASTIC SYNDROME
     Dosage: 10MG, 21 IN 28 S, PO
     Route: 048
     Dates: start: 201207
  2. ENOXAPARIN (ENOXAPARIN) (INJECTION) [Concomitant]
  3. ONDANSETRON (ONDANSETRON) [Concomitant]

REACTIONS (1)
  - Thrombosis [None]
